FAERS Safety Report 17170987 (Version 2)
Quarter: 2020Q1

REPORT INFORMATION
  Report Type: Report from Study
  Country: BR (occurrence: BR)
  Receive Date: 20191218
  Receipt Date: 20200110
  Transmission Date: 20200409
  Serious: Yes (Death, Hospitalization, Other)
  Sender: FDA-Public Use
  Company Number: BR-B.I. PHARMACEUTICALS,INC./RIDGEFIELD-2019-MR-119882

PATIENT
  Age: 76 Year
  Sex: Male
  Weight: 52 kg

DRUGS (6)
  1. OFEV [Suspect]
     Active Substance: NINTEDANIB
     Indication: IDIOPATHIC PULMONARY FIBROSIS
     Dosage: 150MG 2X AO DIA
     Route: 048
     Dates: start: 201910, end: 20191126
  2. REGRESSA [Concomitant]
     Indication: DEMENTIA ALZHEIMER^S TYPE
     Route: 065
  3. CLOPIDOGREL [Concomitant]
     Active Substance: CLOPIDOGREL BISULFATE
     Indication: TRANSIENT ISCHAEMIC ATTACK
     Route: 065
  4. SINVASTATINA [Concomitant]
     Active Substance: SIMVASTATIN
     Indication: DRUG THERAPY
     Route: 065
  5. AAS [Concomitant]
     Active Substance: ASPIRIN
     Indication: TRANSIENT ISCHAEMIC ATTACK
     Route: 065
  6. PROSSO [Concomitant]
     Indication: OSTEOPOROSIS
     Route: 065

REACTIONS (14)
  - Pulmonary sepsis [Fatal]
  - Feeding disorder [Not Recovered/Not Resolved]
  - Pneumonia [Fatal]
  - Gastrointestinal disorder [Recovered/Resolved]
  - Secretion discharge [Not Recovered/Not Resolved]
  - Multiple organ dysfunction syndrome [Fatal]
  - Intestinal haemorrhage [Recovered/Resolved]
  - Haemorrhage [Unknown]
  - Disease complication [Unknown]
  - Gastrointestinal carcinoma [Not Recovered/Not Resolved]
  - Acute respiratory distress syndrome [Unknown]
  - Dyspnoea [Not Recovered/Not Resolved]
  - Gastric cancer [Fatal]
  - Cough [Not Recovered/Not Resolved]

NARRATIVE: CASE EVENT DATE: 201910
